FAERS Safety Report 20299351 (Version 1)
Quarter: 2022Q1

REPORT INFORMATION
  Report Type: Spontaneous
  Country: FR (occurrence: FR)
  Receive Date: 20220105
  Receipt Date: 20220105
  Transmission Date: 20220423
  Serious: Yes (Other)
  Sender: FDA-Public Use
  Company Number: None

PATIENT
  Age: 30 Year
  Sex: Male

DRUGS (6)
  1. ACETAMINOPHEN [Suspect]
     Active Substance: ACETAMINOPHEN
     Indication: Product used for unknown indication
     Dosage: UNK, INCONNUE
     Route: 048
     Dates: start: 20211001, end: 20211001
  2. KETOPROFEN [Suspect]
     Active Substance: KETOPROFEN
     Indication: Product used for unknown indication
     Dosage: UNK, INCONNUE
     Route: 048
     Dates: start: 20211001, end: 20211001
  3. LOPERAMIDE [Suspect]
     Active Substance: LOPERAMIDE
     Indication: Product used for unknown indication
     Dosage: UNK, INCONNUE
     Route: 048
     Dates: start: 20211001, end: 20211001
  4. HEROIN [Suspect]
     Active Substance: DIAMORPHINE
     Indication: Product used for unknown indication
     Dosage: UNK, INCONNUE
     Route: 065
     Dates: start: 20211001, end: 20211001
  5. ALCOHOL [Suspect]
     Active Substance: ALCOHOL
     Indication: Product used for unknown indication
     Dosage: UNK, INCONNUE
     Route: 048
     Dates: start: 20211001, end: 20211001
  6. METOPIMAZINE [Suspect]
     Active Substance: METOPIMAZINE
     Indication: Product used for unknown indication
     Dosage: UNK, INCONNUE
     Route: 048
     Dates: start: 20211001, end: 20211001

REACTIONS (3)
  - Suicidal ideation [Recovered/Resolved]
  - Poisoning deliberate [Recovered/Resolved]
  - Drug abuse [Not Recovered/Not Resolved]

NARRATIVE: CASE EVENT DATE: 20211001
